FAERS Safety Report 9742770 (Version 1)
Quarter: 2013Q4

REPORT INFORMATION
  Report Type: Spontaneous
  Country: US (occurrence: US)
  Receive Date: 20131210
  Receipt Date: 20131210
  Transmission Date: 20140711
  Serious: No
  Sender: FDA-Public Use
  Company Number: US-ENDO PHARMACEUTICALS INC.-PRED20130018

PATIENT
  Age: 62 Year
  Sex: Female

DRUGS (2)
  1. PREDNISONE TABLETS 10MG [Suspect]
     Indication: PRODUCT USED FOR UNKNOWN INDICATION
     Route: 048
     Dates: start: 201304, end: 201304
  2. PREDNISONE TABLETS 10MG [Suspect]
     Route: 048
     Dates: start: 201304, end: 20130415

REACTIONS (1)
  - Urticaria [Not Recovered/Not Resolved]
